FAERS Safety Report 8847363 (Version 2)
Quarter: 2013Q2

REPORT INFORMATION
  Report Type: Spontaneous
  Country: CA (occurrence: CA)
  Receive Date: 20121018
  Receipt Date: 20130419
  Transmission Date: 20140414
  Serious: Yes (Death, Hospitalization, Other)
  Sender: FDA-Public Use
  Company Number: CA-ELI_LILLY_AND_COMPANY-CA201210001890

PATIENT
  Age: 60 Year
  Sex: Male
  Weight: 72.11 kg

DRUGS (3)
  1. CYMBALTA [Suspect]
     Indication: DEPRESSION
     Dosage: 30 MG, QD
     Route: 048
  2. CYMBALTA [Interacting]
     Dosage: 60 MG, QD
     Route: 048
  3. FENTANYL [Interacting]
     Indication: CERVICAL MYELOPATHY
     Dosage: 50 UG, Q 72 H

REACTIONS (8)
  - Gastrointestinal perforation [Fatal]
  - Hypoventilation [Unknown]
  - Oxygen saturation decreased [Unknown]
  - Serotonin syndrome [Unknown]
  - Blood potassium decreased [Unknown]
  - Potentiating drug interaction [Unknown]
  - Hypotension [Unknown]
  - Infection [Unknown]
